FAERS Safety Report 9524712 (Version 4)
Quarter: 2013Q4

REPORT INFORMATION
  Report Type: Spontaneous
  Country: SE (occurrence: SE)
  Receive Date: 20130916
  Receipt Date: 20131111
  Transmission Date: 20140711
  Serious: Yes (Other)
  Sender: FDA-Public Use
  Company Number: PHHY2013SE101849

PATIENT
  Sex: Female

DRUGS (3)
  1. TEGRETOL [Suspect]
     Dosage: 4.5 DF, DAILY
  2. TEGRETOL [Suspect]
     Dosage: 4 DF, (2 IN THE MORNING AND 2 IN THE EVENING AT THE TIME OF THE EVENT)
  3. TEGRETOL [Suspect]
     Dosage: 1 DF, DAILY

REACTIONS (3)
  - Electrolyte imbalance [Unknown]
  - Fluid retention [Unknown]
  - Diplopia [Unknown]
